FAERS Safety Report 8795304 (Version 2)
Quarter: 2013Q4

REPORT INFORMATION
  Report Type: Spontaneous
  Country: US (occurrence: US)
  Receive Date: 20120918
  Receipt Date: 20131031
  Transmission Date: 20140711
  Serious: Yes (Death, Other)
  Sender: FDA-Public Use
  Company Number: US-009507513-1209USA006060

PATIENT
  Age: 65 Year
  Sex: Female

DRUGS (9)
  1. SAPHRIS [Suspect]
     Dosage: 5 MG, QD
     Route: 048
  2. LEXAPRO [Suspect]
     Dosage: 10 MG, QD
     Route: 048
  3. LEXAPRO [Suspect]
     Dosage: 20 MG, QD
     Route: 048
  4. XANAX [Suspect]
     Dosage: 1 MG, QD
     Route: 048
  5. VICODIN [Suspect]
     Dosage: UNK
     Route: 048
  6. TRIAMTERENE [Concomitant]
  7. ATACAND [Concomitant]
  8. SIMVASTATIN TABLETS, USP [Concomitant]
  9. FAMOTIDINE [Concomitant]

REACTIONS (10)
  - Cardiomegaly [Fatal]
  - Self-medication [Fatal]
  - Completed suicide [Fatal]
  - Bipolar I disorder [Fatal]
  - Pneumoconiosis [Fatal]
  - Left ventricular hypertrophy [Fatal]
  - Pulmonary congestion [Fatal]
  - Visceral congestion [Fatal]
  - Nephrosclerosis [Fatal]
  - Toxicity to various agents [Fatal]
